FAERS Safety Report 6525085-8 (Version None)
Quarter: 2009Q4

REPORT INFORMATION
  Report Type: 
  Country: None (occurrence: None)
  Receive Date: 20091214
  Receipt Date: 20090813
  Transmission Date: 20100525
  Serious: Yes (Hospitalization)
  Sender: FDA-Public Use
  Company Number: 650669

PATIENT
  Age: 61 Year
  Sex: Female

DRUGS (2)
  1. PEGASYS [Suspect]
     Indication: HEPATITIS C
     Dosage: 180 UG 1 PER WEEK SUBCUTANEOUS
     Route: 058
     Dates: start: 20080205, end: 20090101
  2. RIBAVIRIN [Suspect]
     Indication: HEPATITIS C
     Dosage: 400MG DAILY ORAL
     Route: 048
     Dates: start: 20080205, end: 20090101

REACTIONS (1)
  - HAEMOGLOBIN DECREASED [None]
